FAERS Safety Report 8511575-5 (Version None)
Quarter: 2012Q2

REPORT INFORMATION
  Report Type: 
  Country: None (occurrence: None)
  Receive Date: 20120629
  Receipt Date: 20120626
  Transmission Date: 20120825
  Serious: Yes (Hospitalization)
  Sender: FDA-Public Use
  Company Number: WAES 1206USA04528

PATIENT
  Age: 64 Year
  Sex: Male

DRUGS (8)
  1. DECADRON [Suspect]
     Indication: MULTIPLE MYELOMA
     Dosage: 8 MG PO
     Route: 048
     Dates: start: 20120411
  2. ASPIRIN [Concomitant]
  3. BACTRIM [Concomitant]
  4. VALACYCLOVIR HYDROCHLORIDE [Concomitant]
  5. ELOTUZUMAB [Suspect]
     Indication: MULTIPLE MYELOMA
     Dosage: 900 MG IV
     Route: 042
     Dates: start: 20120411
  6. AMOXICILLIN [Concomitant]
  7. DECADRON [Suspect]
     Indication: MULTIPLE MYELOMA
     Dosage: 28 MG/1X IV
     Route: 042
     Dates: start: 20120411
  8. LENALIDOMIDE [Suspect]
     Indication: MULTIPLE MYELOMA
     Dosage: 25 MG/1X PO
     Route: 048
     Dates: start: 20120411

REACTIONS (3)
  - SWELLING [None]
  - PULMONARY EMBOLISM [None]
  - MYALGIA [None]
